FAERS Safety Report 7353610-6 (Version None)
Quarter: 2011Q1

REPORT INFORMATION
  Report Type: 
  Country: None (occurrence: None)
  Receive Date: 20110310
  Receipt Date: 20110310
  Transmission Date: 20110831
  Serious: No
  Sender: FDA-Public Use
  Company Number: None

PATIENT
  Age: 62 Year
  Sex: Female
  Weight: 49.8957 kg

DRUGS (1)
  1. CLOBETASOL PROPIONATE [Suspect]
     Indication: RASH
     Dosage: RUBBED IN ON SIDE OF KNEE TO COVER AFFECTED AREAS MORNING - BEDTIME

REACTIONS (3)
  - MONOPLEGIA [None]
  - POSTURE ABNORMAL [None]
  - DIZZINESS [None]
